FAERS Safety Report 14513820 (Version 1)
Quarter: 2018Q1

REPORT INFORMATION
  Report Type: Spontaneous
  Country: US (occurrence: US)
  Receive Date: 20180208
  Receipt Date: 20180208
  Transmission Date: 20180509
  Serious: Yes (Life-Threatening, Disabling, Other)
  Sender: FDA-Public Use
  Company Number: None

PATIENT
  Age: 60 Year
  Sex: Female
  Weight: 88.65 kg

DRUGS (7)
  1. FORTEO [Suspect]
     Active Substance: TERIPARATIDE
     Indication: OSTEOPOROSIS
     Dosage: ?          QUANTITY:1 INJECTION(S);?
     Route: 058
     Dates: start: 20161001, end: 20180131
  2. STRONTIUM CITRATE [Concomitant]
  3. VITAMIN D3 [Concomitant]
     Active Substance: CHOLECALCIFEROL
  4. FISH OIL [Concomitant]
     Active Substance: FISH OIL
  5. PROBIOTIC [Concomitant]
     Active Substance: PROBIOTICS NOS
  6. CALCIUM [Concomitant]
     Active Substance: CALCIUM
  7. CENTRUM SILVER [Concomitant]
     Active Substance: MINERALS\VITAMINS

REACTIONS (5)
  - Retinal tear [None]
  - Renal disorder [None]
  - Squamous cell carcinoma of skin [None]
  - Swelling [None]
  - Peripheral swelling [None]

NARRATIVE: CASE EVENT DATE: 20170118
